FAERS Safety Report 9336479 (Version 1)
Quarter: 2013Q2

REPORT INFORMATION
  Report Type: Report from Study
  Country: BR (occurrence: BR)
  Receive Date: 20130607
  Receipt Date: 20130607
  Transmission Date: 20140414
  Serious: Yes (Hospitalization, Other)
  Sender: FDA-Public Use
  Company Number: BR-ROCHE-1231641

PATIENT
  Sex: Female

DRUGS (5)
  1. XOLAIR [Suspect]
     Indication: ASTHMA
     Route: 058
  2. XOLAIR [Suspect]
     Dosage: 7 AMPOULES EACH 4 WEEKS
     Route: 058
  3. XOLAIR [Suspect]
     Route: 058
     Dates: start: 2010, end: 2012
  4. SERETIDE [Concomitant]
     Route: 065
  5. LOSARTAN [Concomitant]

REACTIONS (8)
  - Lung disorder [Recovering/Resolving]
  - Blood glucose decreased [Recovering/Resolving]
  - Arthritis [Recovering/Resolving]
  - Osteoarthritis [Recovering/Resolving]
  - Weight decreased [Recovering/Resolving]
  - Deafness [Not Recovered/Not Resolved]
  - Hypertension [Not Recovered/Not Resolved]
  - Wrong technique in drug usage process [Unknown]
